FAERS Safety Report 15923685 (Version 2)
Quarter: 2019Q1

REPORT INFORMATION
  Report Type: Spontaneous
  Country: US (occurrence: US)
  Receive Date: 20190205
  Receipt Date: 20190219
  Transmission Date: 20190417
  Serious: No
  Sender: FDA-Public Use
  Company Number: US-ALLERGAN-1822143US

PATIENT
  Sex: Female

DRUGS (3)
  1. BOTOX COSMETIC [Suspect]
     Active Substance: ONABOTULINUMTOXINA
     Indication: SKIN WRINKLING
     Dosage: 50 UNITS, SINGLE
     Route: 030
     Dates: start: 20180226, end: 20180226
  2. BOTOX COSMETIC [Suspect]
     Active Substance: ONABOTULINUMTOXINA
     Indication: SKIN WRINKLING
     Dosage: 5-7, UNITS, SINGLE
     Route: 030
     Dates: start: 20180302, end: 20180302
  3. JUVEDERM [Concomitant]
     Active Substance: HYALURONIC ACID
     Dosage: UNK UNK, SINGLE
     Route: 065

REACTIONS (5)
  - Neck pain [Recovering/Resolving]
  - Back pain [Recovering/Resolving]
  - Tinnitus [Recovering/Resolving]
  - Product preparation error [Unknown]
  - Nausea [Recovering/Resolving]
